FAERS Safety Report 8984313 (Version 2)
Quarter: 2013Q1

REPORT INFORMATION
  Report Type: Spontaneous
  Country: US (occurrence: None)
  Receive Date: 20121214
  Receipt Date: 20130205
  Transmission Date: 20140127
  Serious: No
  Sender: FDA-Public Use
  Company Number: DSA_61326_2012

PATIENT
  Age: 17 Year
  Sex: Male

DRUGS (2)
  1. XENAZINE [Suspect]
     Indication: DYSKINESIA
     Route: 048
     Dates: start: 20121106
  2. REMICADE [Concomitant]

REACTIONS (1)
  - Crohn^s disease [None]
